FAERS Safety Report 6318019-2 (Version None)
Quarter: 2009Q3

REPORT INFORMATION
  Report Type: 
  Country: None (occurrence: None)
  Receive Date: 20090821
  Receipt Date: 20090811
  Transmission Date: 20100115
  Serious: Yes (Death)
  Sender: FDA-Public Use
  Company Number: FR-GENENTECH-287764

PATIENT
  Age: 78 Year
  Sex: Male

DRUGS (2)
  1. ACTIVASE [Suspect]
     Indication: SUPERIOR VENA CAVAL OCCLUSION
     Dosage: 100 MG, UNK
     Route: 042
  2. HEPARIN [Suspect]
     Indication: SUPERIOR VENA CAVAL OCCLUSION
     Dosage: 1000 UNK, UNK

REACTIONS (2)
  - DRUG INEFFECTIVE [None]
  - MULTI-ORGAN FAILURE [None]
